FAERS Safety Report 7005108-2 (Version None)
Quarter: 2010Q3

REPORT INFORMATION
  Report Type: 
  Country: None (occurrence: None)
  Receive Date: 20100921
  Receipt Date: 20100914
  Transmission Date: 20110219
  Serious: Yes (Hospitalization, Other)
  Sender: FDA-Public Use
  Company Number: IT-ROXANE LABORATORIES, INC.-2010-RO-01221RO

PATIENT
  Age: 68 Year
  Sex: Female

DRUGS (14)
  1. PREDNISONE [Suspect]
     Indication: RHEUMATOID ARTHRITIS
     Dosage: 10 MG
     Route: 051
  2. PREDNISONE [Suspect]
     Indication: CROHN'S DISEASE
     Dosage: 50 MG
     Route: 051
     Dates: end: 20031101
  3. PREDNISONE [Suspect]
     Dosage: 10 MG
     Dates: start: 20040401, end: 20080901
  4. PREDNISONE [Suspect]
     Dosage: 10 MG
     Dates: start: 20080101
  5. AZATHIOPRINE [Suspect]
     Indication: RHEUMATOID ARTHRITIS
     Dates: start: 20031101, end: 20041001
  6. AZATHIOPRINE [Suspect]
     Dates: start: 20060101, end: 20080101
  7. NSAIDS [Suspect]
     Indication: RHEUMATOID ARTHRITIS
  8. CORTICOSTEROIDS [Suspect]
     Indication: UVEITIS
     Route: 061
  9. URSODIOL [Suspect]
     Indication: CHOLELITHIASIS
  10. PYRIDOSTIGMINE BROMIDE [Suspect]
     Indication: MYASTHENIA GRAVIS
  11. MESALAZINE [Suspect]
     Indication: CROHN'S DISEASE
     Dosage: 2.4 G
  12. INFLIXIMAB [Suspect]
     Indication: RHEUMATOID ARTHRITIS
  13. ADALIMUMAB [Suspect]
     Dates: start: 20080601
  14. ADALIMUMAB [Suspect]

REACTIONS (7)
  - CROHN'S DISEASE [None]
  - DISEASE RECURRENCE [None]
  - DRUG DEPENDENCE [None]
  - MYASTHENIA GRAVIS [None]
  - OSTEOPOROSIS [None]
  - PANCREATITIS ACUTE [None]
  - PNEUMONIA [None]
